FAERS Safety Report 24738639 (Version 1)
Quarter: 2024Q4

REPORT INFORMATION
  Report Type: Spontaneous
  Country: US (occurrence: US)
  Receive Date: 20241216
  Receipt Date: 20241216
  Transmission Date: 20250114
  Serious: No
  Sender: PFIZER
  Company Number: US-PFIZER INC-202400319314

PATIENT
  Age: 4 Year
  Sex: Male
  Weight: 13.605 kg

DRUGS (1)
  1. GENOTROPIN [Suspect]
     Active Substance: SOMATROPIN
     Indication: Growth disorder
     Dosage: 0.8 DAILY
     Dates: start: 20241021

REACTIONS (1)
  - Device leakage [Unknown]
